FAERS Safety Report 9914628 (Version 1)
Quarter: 2014Q1

REPORT INFORMATION
  Report Type: Report from Study
  Country: US (occurrence: US)
  Receive Date: 20140220
  Receipt Date: 20140220
  Transmission Date: 20141002
  Serious: Yes (Other)
  Sender: FDA-Public Use
  Company Number: PHEH2014US003070

PATIENT
  Age: 27 Year
  Sex: Male
  Weight: 110.66 kg

DRUGS (6)
  1. TASIGNA [Suspect]
     Indication: CHRONIC MYELOID LEUKAEMIA
     Dosage: 300 MG, BID
     Route: 048
     Dates: start: 20130831, end: 20130906
  2. TASIGNA [Suspect]
     Dosage: 300 MG, BID
     Route: 048
     Dates: start: 20131017, end: 20131126
  3. TASIGNA [Suspect]
     Dosage: 1 DF, TID (2 CAPSULES MORNING AND 1 CAPSULE EVENING)
     Route: 048
     Dates: start: 20140107
  4. ALLOPURINOL [Concomitant]
  5. HYDROXYUREA [Concomitant]
  6. MULTIVITAMIN [Concomitant]

REACTIONS (6)
  - Pancytopenia [Recovering/Resolving]
  - Influenza [Recovered/Resolved]
  - Pyrexia [Recovered/Resolved]
  - Oropharyngeal pain [Recovered/Resolved]
  - Cough [Recovered/Resolved]
  - Rhinorrhoea [Recovered/Resolved]
